FAERS Safety Report 4855618-9 (Version None)
Quarter: 2005Q4

REPORT INFORMATION
  Report Type: 
  Country: None (occurrence: None)
  Receive Date: 20051214
  Receipt Date: 20051201
  Transmission Date: 20060501
  Serious: Yes (Other)
  Sender: FDA-Public Use
  Company Number: 219985

PATIENT
  Age: 71 Year
  Sex: Male
  Weight: 53 kg

DRUGS (8)
  1. RITUXAN [Suspect]
     Indication: NON-HODGKIN'S LYMPHOMA
     Dosage: 375 MG/M2,
     Dates: start: 20040601
  2. NOVANTRONE [Suspect]
     Indication: NON-HODGKIN'S LYMPHOMA
     Dosage: 10 MG/M2,
  3. FLUDARABINE PHOSPHATE [Suspect]
     Indication: NON-HODGKIN'S LYMPHOMA
     Dosage: 25 MG/M2,
  4. DECADRON [Suspect]
     Indication: NON-HODGKIN'S LYMPHOMA
     Dosage: 20 MG/M2,
  5. BLOOD TRANSFUSION (BLOOD, WHOLE) [Concomitant]
  6. PLATELETS [Concomitant]
  7. GANCICLOVIR SODIUM [Concomitant]
  8. FOSCAVIR [Concomitant]

REACTIONS (10)
  - CYTOMEGALOVIRUS INFECTION [None]
  - DIVERTICULAR HERNIA [None]
  - GASTROINTESTINAL INFECTION [None]
  - HAEMOGLOBIN DECREASED [None]
  - POST PROCEDURAL COMPLICATION [None]
  - SHOCK [None]
  - SMALL INTESTINAL HAEMORRHAGE [None]
  - SMALL INTESTINE ULCER [None]
  - THROMBOCYTOPENIA [None]
  - THROMBOSIS [None]
